FAERS Safety Report 5971306-X (Version None)
Quarter: 2008Q4

REPORT INFORMATION
  Report Type: 
  Country: None (occurrence: None)
  Receive Date: 20081128
  Receipt Date: 20081119
  Transmission Date: 20090506
  Serious: Yes (Other)
  Sender: FDA-Public Use
  Company Number: JP-PFIZER INC-2008098613

PATIENT
  Age: 22 Year
  Sex: Female

DRUGS (3)
  1. PREDNISOLONE [Suspect]
     Route: 048
  2. HEPARIN [Suspect]
     Route: 042
  3. SOL-MELCORT [Suspect]
     Indication: NEPHROTIC SYNDROME
     Dosage: DAILY DOSE:1000MG

REACTIONS (2)
  - DIABETES MELLITUS [None]
  - DRUG EXPOSURE DURING PREGNANCY [None]
